FAERS Safety Report 23858933 (Version 1)
Quarter: 2024Q2

REPORT INFORMATION
  Report Type: Spontaneous
  Country: US (occurrence: US)
  Receive Date: 20240515
  Receipt Date: 20240515
  Transmission Date: 20240716
  Serious: Yes (Other)
  Sender: FDA-Public Use
  Company Number: US-THERATECHNOLOGIES INC.-2024-THE-TES-000096

PATIENT

DRUGS (2)
  1. EGRIFTA SV [Suspect]
     Active Substance: TESAMORELIN ACETATE
     Indication: Lipodystrophy acquired
     Dosage: 1.4 MG, 0.35 ML, QD
     Route: 058
     Dates: start: 20240306, end: 20240425
  2. EGRIFTA SV [Suspect]
     Active Substance: TESAMORELIN ACETATE
     Dosage: 1.4 MG, 0.35 ML, QD
     Route: 058
     Dates: start: 20240501

REACTIONS (7)
  - Dehydration [Recovering/Resolving]
  - Gastrointestinal bacterial infection [Recovering/Resolving]
  - Weight increased [Not Recovered/Not Resolved]
  - Asthenia [Unknown]
  - Tremor [Unknown]
  - Arthralgia [Recovered/Resolved]
  - Therapeutic product effect incomplete [Not Recovered/Not Resolved]

NARRATIVE: CASE EVENT DATE: 20240201
